FAERS Safety Report 10075799 (Version 1)
Quarter: 2014Q2

REPORT INFORMATION
  Report Type: Spontaneous
  Country: US (occurrence: US)
  Receive Date: 20140414
  Receipt Date: 20140414
  Transmission Date: 20141212
  Serious: Yes (Other)
  Sender: FDA-Public Use
  Company Number: US-BAYER-2014-053929

PATIENT
  Sex: Male

DRUGS (2)
  1. XOFIGO [Suspect]
     Indication: PROSTATE CANCER METASTATIC
     Dosage: NOT PROVIDED
     Route: 042
     Dates: start: 20140403, end: 201404
  2. XOFIGO [Suspect]
     Indication: METASTASES TO BONE

REACTIONS (5)
  - Dehydration [None]
  - Back pain [None]
  - Pain in extremity [None]
  - Nausea [None]
  - Vomiting [None]
